FAERS Safety Report 9832058 (Version 2)
Quarter: 2014Q1

REPORT INFORMATION
  Report Type: Spontaneous
  Country: US (occurrence: US)
  Receive Date: 20140121
  Receipt Date: 20140121
  Transmission Date: 20141002
  Serious: Yes (Hospitalization)
  Sender: FDA-Public Use
  Company Number: US-PFIZER INC-2013370965

PATIENT
  Age: 31 Year
  Sex: Female

DRUGS (4)
  1. FLAGYL [Suspect]
     Indication: VULVOVAGINITIS TRICHOMONAL
     Dosage: 750 MG, 1X/DAY
  2. WARFARIN [Interacting]
     Indication: ANTICOAGULANT THERAPY
     Dosage: 5 MG OF EACH DAY FOR 3 DAYS FOLLOWED BY 7.5 MG THE FOURTH DAY, AND THEN REPEATING THE CYCLE
  3. WARFARIN [Interacting]
     Dosage: 5 MG OF EACH DAY FOR 3 DAYS FOLLOWED BY 7.5 MG THE FOURTH DAY, AND THEN REPEATING THE CYCLE
  4. PROPOXYPHENE [Concomitant]

REACTIONS (5)
  - Drug interaction [Recovered/Resolved]
  - Contusion [Unknown]
  - Prothrombin time prolonged [Recovered/Resolved]
  - Haemorrhage [Unknown]
  - Ecchymosis [Unknown]
